FAERS Safety Report 8773590 (Version 1)
Quarter: 2012Q4

REPORT INFORMATION
  Report Type: 
  Country: CH (occurrence: US)
  Receive Date: 20120907
  Receipt Date: 20120907
  Transmission Date: 20130627
  Serious: Yes (Other)
  Sender: FDA-Public Use
  Company Number: US-ASTELLAS-2012EU006255

PATIENT
  Age: 57 Year
  Sex: Male

DRUGS (1)
  1. FK506 [Suspect]
     Indication: LIVER TRANSPLANT
     Dosage: UNK
     Route: 065

REACTIONS (2)
  - Multifocal motor neuropathy [Recovering/Resolving]
  - Demyelinating polyneuropathy [Recovering/Resolving]
